FAERS Safety Report 23399788 (Version 2)
Quarter: 2025Q4

REPORT INFORMATION
  Report Type: Spontaneous
  Country: US (occurrence: US)
  Receive Date: 20240114
  Receipt Date: 20251211
  Transmission Date: 20260118
  Serious: Yes (Death, Life-Threatening, Hospitalization, Other)
  Sender: AUROBINDO
  Company Number: US-MLMSERVICE-20231229-4748514-1

PATIENT
  Age: 74 Year
  Sex: Male

DRUGS (2)
  1. AMIODARONE [Suspect]
     Active Substance: AMIODARONE
     Indication: Coronary artery disease
     Dosage: FOR MONTHS
     Route: 065
  2. AMIODARONE [Suspect]
     Active Substance: AMIODARONE
     Indication: Ischaemic cardiomyopathy

REACTIONS (5)
  - Thyrotoxic crisis [Fatal]
  - Hyperthyroidism [Fatal]
  - Cardiogenic shock [Fatal]
  - Cardiac arrest [Unknown]
  - Ventricular tachycardia [Unknown]
